FAERS Safety Report 7729363-6 (Version None)
Quarter: 2011Q3

REPORT INFORMATION
  Report Type: 
  Country: None (occurrence: None)
  Receive Date: 20110906
  Receipt Date: 20110829
  Transmission Date: 20111222
  Serious: Yes (Hospitalization, Other)
  Sender: FDA-Public Use
  Company Number: US-ASTELLAS-2011US004626

PATIENT
  Sex: Female

DRUGS (14)
  1. LEXAPRO [Concomitant]
     Indication: DEPRESSION
     Dosage: 10 MG, UID/QD
     Route: 048
  2. ZESTORETIC [Concomitant]
     Indication: HYPERTENSION
     Dosage: 20-12.5 UNK
     Route: 048
  3. ERLOTINIB HYDROCHLORIDE [Suspect]
     Indication: NON-SMALL CELL LUNG CANCER
     Dosage: 150 MG, UID/QD
     Route: 048
     Dates: start: 20110721, end: 20110801
  4. CENTRUM SILVER [Concomitant]
     Indication: SUPPLEMENTATION THERAPY
     Dosage: 1 DF, UID/QD
     Route: 048
  5. ZOFRAN [Concomitant]
     Indication: VOMITING
  6. METOPROLOL TARTRATE [Concomitant]
     Indication: BLOOD PRESSURE
     Dosage: 50 MG, PRN
     Route: 048
  7. ZOFRAN [Concomitant]
     Indication: NAUSEA
     Dosage: 8 MG, PRN
     Route: 048
  8. CLINDAMYCIN [Concomitant]
     Indication: DERMATITIS ACNEIFORM
     Dosage: UNK, PRN
     Route: 065
  9. ESTRADIOL [Concomitant]
     Indication: HORMONE THERAPY
     Dosage: 1 MG, UID/QD
     Route: 048
  10. LISINOPRIL [Concomitant]
     Indication: BLOOD PRESSURE
     Dosage: 20/12.5 MG
     Route: 048
  11. DASATINIB [Suspect]
     Dosage: 20 MG, UID/QD
     Route: 048
     Dates: start: 20110721, end: 20110801
  12. DASATINIB [Suspect]
     Indication: NON-SMALL CELL LUNG CANCER
     Dosage: 50 MG, UID/QD
     Route: 048
     Dates: start: 20110721, end: 20110801
  13. ACTONEL [Concomitant]
     Indication: PRODUCT USED FOR UNKNOWN INDICATION
     Dosage: 150 MG, MONTHLY
     Route: 048
  14. VITAMIN D [Concomitant]
     Indication: SUPPLEMENTATION THERAPY
     Dosage: 2000 U, UID/QD
     Route: 048

REACTIONS (4)
  - PLEURAL EFFUSION [None]
  - PYREXIA [None]
  - GASTROENTERITIS VIRAL [None]
  - PULMONARY EMBOLISM [None]
